FAERS Safety Report 9292024 (Version 3)
Quarter: 2014Q3

REPORT INFORMATION
  Report Type: Spontaneous
  Country: US (occurrence: US)
  Receive Date: 20130516
  Receipt Date: 20140711
  Transmission Date: 20150326
  Serious: Yes (Other)
  Sender: FDA-Public Use
  Company Number: US-PFIZER INC-2013149536

PATIENT
  Age: 70 Year
  Sex: Female

DRUGS (5)
  1. NIASPAN ER [Concomitant]
     Active Substance: NIACIN
     Dosage: 500 MG, UNK
  2. LIPITOR [Concomitant]
     Active Substance: ATORVASTATIN CALCIUM
     Dosage: 40 MG, UNK
  3. XALKORI [Suspect]
     Active Substance: CRIZOTINIB
     Dosage: 250 MG, 2X/DAY (TAKE 1 CAPSULE)
     Route: 048
     Dates: start: 20120725
  4. METOPROLOL TARTRATE. [Concomitant]
     Active Substance: METOPROLOL TARTRATE
     Dosage: 50 MG, UNK
  5. VAGIFEM [Concomitant]
     Active Substance: ESTRADIOL
     Dosage: 10 UG, UNK

REACTIONS (4)
  - Nausea [Unknown]
  - Pulmonary thrombosis [Unknown]
  - Joint swelling [Unknown]
  - Peripheral swelling [Unknown]

NARRATIVE: CASE EVENT DATE: 20130506
